FAERS Safety Report 6453453-1 (Version None)
Quarter: 2009Q4

REPORT INFORMATION
  Report Type: 
  Country: None (occurrence: None)
  Receive Date: 20091124
  Receipt Date: 20091113
  Transmission Date: 20100525
  Serious: Yes (Other)
  Sender: FDA-Public Use
  Company Number: US-JNJFOC-20091104391

PATIENT
  Sex: Female
  Weight: 92.53 kg

DRUGS (8)
  1. REMICADE [Suspect]
     Route: 042
  2. REMICADE [Suspect]
     Indication: RHEUMATOID ARTHRITIS
     Route: 042
  3. ALEVE [Concomitant]
     Indication: RHEUMATOID ARTHRITIS
  4. OMEPRAZOLE [Concomitant]
  5. METHOTREXATE [Concomitant]
     Indication: RHEUMATOID ARTHRITIS
  6. FOLIC ACID [Concomitant]
  7. BENICAR [Concomitant]
     Indication: HYPERTENSION
  8. LEVOTHYROXINE SODIUM [Concomitant]
     Indication: HYPOTHYROIDISM

REACTIONS (3)
  - ARTHROPATHY [None]
  - COUGH [None]
  - WEIGHT DECREASED [None]
